FAERS Safety Report 19166535 (Version 1)
Quarter: 2021Q2

REPORT INFORMATION
  Report Type: Spontaneous
  Country: FR (occurrence: FR)
  Receive Date: 20210422
  Receipt Date: 20210422
  Transmission Date: 20210717
  Serious: Yes (Death, Other)
  Sender: FDA-Public Use
  Company Number: FR-SUN PHARMACEUTICAL INDUSTRIES LTD-2021RR-292643

PATIENT
  Age: 83 Year
  Sex: Female

DRUGS (10)
  1. PRADAXA [Suspect]
     Active Substance: DABIGATRAN ETEXILATE MESYLATE
     Indication: ATRIAL FIBRILLATION
     Dosage: 220 MILLIGRAM, DAILY
     Route: 048
  2. METHYLPREDNISOLONE. [Suspect]
     Active Substance: METHYLPREDNISOLONE
     Indication: CHEMOTHERAPY SIDE EFFECT PROPHYLAXIS
     Dosage: CYCLICAL
     Route: 042
     Dates: start: 20210305, end: 20210305
  3. EXFORGE [Suspect]
     Active Substance: AMLODIPINE BESYLATE\VALSARTAN
     Indication: HYPERTENSION
     Dosage: 1 DOSAGE FORM, DAILY
     Route: 048
  4. ATORVASTATIN [Suspect]
     Active Substance: ATORVASTATIN
     Indication: DYSLIPIDAEMIA
     Dosage: 10 MILLIGRAM, DAILY
     Route: 048
  5. CORDARONE [Suspect]
     Active Substance: AMIODARONE HYDROCHLORIDE
     Indication: ATRIAL FIBRILLATION
     Dosage: 200 MILLIGRAM, DAILY
     Route: 048
     Dates: end: 20210305
  6. ONDANSETRON [Suspect]
     Active Substance: ONDANSETRON
     Indication: CHEMOTHERAPY SIDE EFFECT PROPHYLAXIS
     Dosage: CYCLICAL
     Route: 042
     Dates: start: 20210305, end: 20210305
  7. FLUOROURACILE [Suspect]
     Active Substance: FLUOROURACIL
     Indication: ADENOCARCINOMA OF COLON
     Dosage: CYCLICAL
     Route: 042
     Dates: start: 20210305, end: 20210305
  8. FOLINATE DE CALCIUM [Suspect]
     Active Substance: LEUCOVORIN CALCIUM
     Indication: ADENOCARCINOMA OF COLON
     Dosage: CYCLICAL
     Route: 042
     Dates: start: 20210305, end: 20210305
  9. OXALIPLATIN. [Suspect]
     Active Substance: OXALIPLATIN
     Indication: ADENOCARCINOMA OF COLON
     Dosage: CYCLICAL
     Route: 042
     Dates: start: 20210305, end: 20210305
  10. ZOPICLONE [Suspect]
     Active Substance: ZOPICLONE
     Indication: SLEEP DISORDER
     Dosage: ()
     Route: 048

REACTIONS (1)
  - Interstitial lung disease [Fatal]

NARRATIVE: CASE EVENT DATE: 20210305
